FAERS Safety Report 12369878 (Version 1)
Quarter: 2016Q2

REPORT INFORMATION
  Report Type: Spontaneous
  Country: BE (occurrence: BE)
  Receive Date: 20160516
  Receipt Date: 20160516
  Transmission Date: 20160815
  Serious: No
  Sender: FDA-Public Use
  Company Number: BE-ALLERGAN-1648390

PATIENT
  Age: 42 Year
  Sex: Female

DRUGS (2)
  1. ULIPRISTAL ACETATE UNK [Suspect]
     Active Substance: ULIPRISTAL ACETATE
     Indication: UTERINE LEIOMYOMA
     Dosage: 5 MG, UNKNOWN
     Route: 065
     Dates: start: 201511
  2. ULIPRISTAL ACETATE UNK [Suspect]
     Active Substance: ULIPRISTAL ACETATE
     Indication: UTERINE HAEMORRHAGE

REACTIONS (2)
  - Disease progression [Unknown]
  - Adenomyosis [Unknown]
